FAERS Safety Report 18589982 (Version 1)
Quarter: 2020Q4

REPORT INFORMATION
  Report Type: Spontaneous
  Country: US (occurrence: US)
  Receive Date: 20201207
  Receipt Date: 20201207
  Transmission Date: 20210114
  Serious: Yes (Hospitalization)
  Sender: FDA-Public Use
  Company Number: None

PATIENT
  Sex: Female

DRUGS (2)
  1. MULPLETA [Suspect]
     Active Substance: LUSUTROMBOPAG
     Indication: THROMBOCYTOPENIA
     Dosage: ?          OTHER FREQUENCY:EVERYDAY FOR 7 DAY;?
     Route: 048
     Dates: start: 20201130
  2. NONE LISTED [Concomitant]

REACTIONS (2)
  - Hospitalisation [None]
  - Unevaluable event [None]
